FAERS Safety Report 25418742 (Version 2)
Quarter: 2025Q4

REPORT INFORMATION
  Report Type: Report from Study
  Country: US (occurrence: US)
  Receive Date: 20250610
  Receipt Date: 20251201
  Transmission Date: 20260118
  Serious: Yes (Other)
  Sender: EISAI
  Company Number: US-Eisai-EC-2025-190652

PATIENT
  Age: 70 Year
  Sex: Male
  Weight: 92 kg

DRUGS (10)
  1. LECANEMAB [Suspect]
     Active Substance: LECANEMAB
     Indication: Cognitive disorder
     Dosage: FREQUENCY UNKNOWN
     Route: 042
     Dates: start: 20240410, end: 20240524
  2. LECANEMAB [Suspect]
     Active Substance: LECANEMAB
     Dosage: DOSE INCREASED, FREQUENCY UNKNOWN
     Route: 042
     Dates: start: 20240621, end: 20240621
  3. LECANEMAB [Suspect]
     Active Substance: LECANEMAB
     Dosage: FREQUENCY UNKNOWN
     Route: 042
     Dates: start: 20240710, end: 20240710
  4. LECANEMAB [Suspect]
     Active Substance: LECANEMAB
     Dosage: FREQUENCY UNKNOWN
     Route: 042
  5. MULTI-VITAMIN W/ MINERALS [Concomitant]
     Indication: Supplementation therapy
     Route: 048
     Dates: start: 2008
  6. DONEPEZIL HYDROCHLORIDE [Concomitant]
     Active Substance: DONEPEZIL HYDROCHLORIDE
     Indication: Dementia Alzheimer^s type
     Route: 048
     Dates: start: 201602
  7. MEMANTINE [Concomitant]
     Active Substance: MEMANTINE
     Indication: Dementia Alzheimer^s type
     Route: 048
     Dates: start: 201602
  8. SERTRALINE HYDROCHLORIDE [Concomitant]
     Active Substance: SERTRALINE HYDROCHLORIDE
     Indication: Depression
     Route: 048
     Dates: start: 201602
  9. TADALAFIL [Concomitant]
     Active Substance: TADALAFIL
     Indication: Erectile dysfunction
     Route: 048
     Dates: start: 201602
  10. PRAMIPEXOLE DIHYDROCHLORIDE [Concomitant]
     Active Substance: PRAMIPEXOLE DIHYDROCHLORIDE
     Indication: Restless legs syndrome
     Route: 048
     Dates: start: 201803

REACTIONS (1)
  - Amyloid related imaging abnormality-microhaemorrhages and haemosiderin deposits [Recovering/Resolving]

NARRATIVE: CASE EVENT DATE: 20240715
